FAERS Safety Report 24190397 (Version 3)
Quarter: 2024Q3

REPORT INFORMATION
  Report Type: Spontaneous
  Country: US (occurrence: US)
  Receive Date: 20240808
  Receipt Date: 20240819
  Transmission Date: 20241017
  Serious: No
  Sender: ABBVIE
  Company Number: US-ABBVIE-5867307

PATIENT
  Age: 72 Year
  Sex: Male

DRUGS (1)
  1. CREON [Suspect]
     Active Substance: PANCRELIPASE AMYLASE\PANCRELIPASE LIPASE\PANCRELIPASE PROTEASE
     Indication: Pancreatic failure
     Dosage: FORM STRENGTH: 24000 UNIT FREQUENCY TEXT: 1 PER MEAL BUT 2 DURING DINNER
     Route: 048
     Dates: start: 2019

REACTIONS (4)
  - Malaise [Not Recovered/Not Resolved]
  - Therapeutic product effect decreased [Not Recovered/Not Resolved]
  - Product physical consistency issue [Unknown]
  - Product physical issue [Unknown]

NARRATIVE: CASE EVENT DATE: 20240701
